FAERS Safety Report 9270957 (Version 1)
Quarter: 2013Q2

REPORT INFORMATION
  Report Type: Spontaneous
  Country: DE (occurrence: DE)
  Receive Date: 20130506
  Receipt Date: 20130506
  Transmission Date: 20140414
  Serious: Yes (Congenital Anomaly)
  Sender: FDA-Public Use
  Company Number: DE-ROCHE-1220037

PATIENT
  Sex: Female
  Weight: 2.5 kg

DRUGS (4)
  1. INTERFERON ALFA-2A [Suspect]
     Indication: PRODUCT USED FOR UNKNOWN INDICATION
     Dosage: 4.5 OR 9MIO IE/D, TAKEN FROM 5.6-36.1 GW
     Route: 064
     Dates: start: 20120501, end: 20121129
  2. INTERFERON ALFA-2A [Suspect]
     Route: 064
  3. FOLVERLAN [Suspect]
     Indication: PRODUCT USED FOR UNKNOWN INDICATION
     Dosage: TAKEN FROM 0-31.6 GW
     Route: 065
     Dates: start: 20120321, end: 20121030
  4. PARACETAMOL [Suspect]
     Indication: PRODUCT USED FOR UNKNOWN INDICATION
     Dosage: ADMINISTERED IN 1ST TRIMESTER
     Route: 064

REACTIONS (4)
  - Ventricular septal defect [Unknown]
  - Premature baby [Recovered/Resolved]
  - Atrial septal defect [Unknown]
  - Maternal exposure timing unspecified [Unknown]
